FAERS Safety Report 5973670-4 (Version None)
Quarter: 2008Q4

REPORT INFORMATION
  Report Type: 
  Country: None (occurrence: None)
  Receive Date: 20081201
  Receipt Date: 20081118
  Transmission Date: 20090506
  Serious: Yes (Other)
  Sender: FDA-Public Use
  Company Number: US-ELI_LILLY_AND_COMPANY-US200811005323

PATIENT
  Sex: Male
  Weight: 226.76 kg

DRUGS (6)
  1. ZYPREXA [Suspect]
     Dosage: 20 MG, UNK
     Dates: start: 20081101, end: 20081118
  2. DEPAKOTE [Concomitant]
     Dosage: 500 MG, EACH MORNING
     Dates: start: 20081101
  3. DEPAKOTE [Concomitant]
     Dosage: 1000 MG, EACH EVENING
  4. GEODON [Concomitant]
     Dosage: 80 MG, EACH EVENING
     Dates: start: 20081114
  5. METFORMIN HCL [Concomitant]
     Dosage: 500 MG, UNK
  6. LIPITOR [Concomitant]
     Dosage: 20 MG, UNK
     Dates: start: 20081104

REACTIONS (1)
  - PLATELET COUNT DECREASED [None]
